FAERS Safety Report 5479626-2 (Version None)
Quarter: 2007Q4

REPORT INFORMATION
  Report Type: 
  Country: None (occurrence: None)
  Receive Date: 20071008
  Receipt Date: 20071003
  Transmission Date: 20080405
  Serious: Yes (Other)
  Sender: FDA-Public Use
  Company Number: A0638583A

PATIENT
  Age: 64 Year
  Sex: Female

DRUGS (9)
  1. ADVAIR DISKUS 100/50 [Suspect]
     Indication: CHRONIC OBSTRUCTIVE PULMONARY DISEASE
     Dosage: 1PUFF TWICE PER DAY
     Route: 055
  2. NEXIUM [Concomitant]
  3. XANAX [Concomitant]
  4. HYDROCHLOROTHIAZIDE [Concomitant]
  5. ACTOS [Concomitant]
  6. KLOR-CON [Concomitant]
  7. ASPIRIN [Concomitant]
  8. GLIPIZIDE [Concomitant]
  9. LOTREL [Concomitant]

REACTIONS (6)
  - DISCOMFORT [None]
  - DYSPHONIA [None]
  - INCREASED UPPER AIRWAY SECRETION [None]
  - PNEUMONIA [None]
  - SUFFOCATION FEELING [None]
  - THROAT IRRITATION [None]
